FAERS Safety Report 4353758-4 (Version None)
Quarter: 2004Q2

REPORT INFORMATION
  Report Type: 
  Country: None (occurrence: None)
  Receive Date: 20040503
  Receipt Date: 20030410
  Transmission Date: 20050107
  Serious: Yes (Hospitalization)
  Sender: FDA-Public Use
  Company Number: 03-270-925-02

PATIENT
  Age: 43 Year
  Sex: Male
  Weight: 117.9 kg

DRUGS (3)
  1. WARFARIN SODIUM [Suspect]
     Indication: DEEP VEIN THROMBOSIS
     Dosage: 2.00 TABLET, QD, ORAL
     Route: 048
     Dates: start: 20030101, end: 20030409
  2. WARFARIN SODIUM [Suspect]
     Indication: PULMONARY EMBOLISM
     Dosage: 2.00 TABLET, QD, ORAL
     Route: 048
     Dates: start: 20030101, end: 20030409
  3. LOVENOX [Concomitant]

REACTIONS (3)
  - HAEMORRHAGE [None]
  - INTERNATIONAL NORMALISED RATIO ABNORMAL [None]
  - INTERNATIONAL NORMALISED RATIO DECREASED [None]
